FAERS Safety Report 23105686 (Version 1)
Quarter: 2023Q4

REPORT INFORMATION
  Report Type: Spontaneous
  Country: FI (occurrence: FI)
  Receive Date: 20231025
  Receipt Date: 20231025
  Transmission Date: 20240110
  Serious: Yes (Hospitalization)
  Sender: FDA-Public Use
  Company Number: FI-Orion Corporation ORION PHARMA-BISO2023-0005

PATIENT
  Age: 86 Year
  Sex: Male

DRUGS (9)
  1. DONEPEZIL [Suspect]
     Active Substance: DONEPEZIL
     Indication: Product used for unknown indication
     Dosage: DOSE AND FREQUENCY UNKNOWN
     Route: 048
  2. AMLODIPINE BESYLATE [Suspect]
     Active Substance: AMLODIPINE BESYLATE
     Indication: Product used for unknown indication
     Dosage: DOSE AND FREQUENCY UNKNOWN
  3. AMLODIPINE BESYLATE [Suspect]
     Active Substance: AMLODIPINE BESYLATE
     Dosage: DOSE DECREASED (DOSE AND FREQUENCY UNKNOWN)
  4. CANDESARTAN [Suspect]
     Active Substance: CANDESARTAN
     Indication: Product used for unknown indication
     Dosage: DOSE AND FREQUENCY UNKNOWN
  5. CANDESARTAN [Suspect]
     Active Substance: CANDESARTAN
     Dosage: DOSE DECREASED (DOSE AND FREQUENCY UNKNOWN)
  6. BISOPROLOL [Suspect]
     Active Substance: BISOPROLOL\BISOPROLOL FUMARATE
     Indication: Product used for unknown indication
     Dosage: DOSE AND FREQUENCY UNKNOWN
  7. BISOPROLOL [Suspect]
     Active Substance: BISOPROLOL\BISOPROLOL FUMARATE
     Dosage: DOSE DECREASED (DOSE AND FREQUENCY UNKNOWN)
  8. TAMSULOSIN [Concomitant]
     Active Substance: TAMSULOSIN
     Indication: Product used for unknown indication
     Dosage: DOSE AND FREQUENCY UNKNOWN
  9. ACETAMINOPHEN [Concomitant]
     Active Substance: ACETAMINOPHEN
     Indication: Product used for unknown indication
     Dosage: WHEN NEEDED

REACTIONS (14)
  - Sinus arrest [Recovered/Resolved]
  - Electrocardiogram abnormal [Recovered/Resolved]
  - Fall [Recovered/Resolved]
  - General physical health deterioration [Unknown]
  - Hypotension [Recovered/Resolved]
  - Balance disorder [Recovering/Resolving]
  - Contusion [Unknown]
  - Tongue dry [Unknown]
  - Scratch [Unknown]
  - Feeling hot [Unknown]
  - Eye movement disorder [Unknown]
  - Somnolence [Unknown]
  - Dehydration [Unknown]
  - Pallor [Unknown]
